FAERS Safety Report 5356577-5 (Version None)
Quarter: 2007Q2

REPORT INFORMATION
  Report Type: 
  Country: None (occurrence: None)
  Receive Date: 20070612
  Receipt Date: 20070529
  Transmission Date: 20071010
  Serious: Yes (Life-Threatening)
  Sender: FDA-Public Use
  Company Number: 2007P1000257

PATIENT
  Age: 55 Year
  Sex: Male

DRUGS (2)
  1. BUSULFAN [Suspect]
     Indication: STEM CELL TRANSPLANT
     Dosage: IV
     Route: 042
     Dates: start: 20070419, end: 20070422
  2. FLUDARABINE PHOSPHATE [Concomitant]

REACTIONS (6)
  - CARDIAC DISORDER [None]
  - NAUSEA [None]
  - OEDEMA [None]
  - PNEUMONIA [None]
  - SEPSIS [None]
  - VENOOCCLUSIVE LIVER DISEASE [None]
